FAERS Safety Report 5490299-5 (Version None)
Quarter: 2007Q4

REPORT INFORMATION
  Report Type: 
  Country: None (occurrence: None)
  Receive Date: 20071017
  Receipt Date: 20071002
  Transmission Date: 20080405
  Serious: Yes (Death, Hospitalization)
  Sender: FDA-Public Use
  Company Number: 2007BI021011

PATIENT
  Age: 49 Year
  Sex: Male

DRUGS (1)
  1. NATALIZUMAB [Suspect]
     Indication: MULTIPLE SCLEROSIS
     Dosage: 300 MG; QM; IV
     Route: 042
     Dates: start: 20060919, end: 20070618

REACTIONS (3)
  - ASTHENIA [None]
  - MULTIPLE SCLEROSIS [None]
  - RESPIRATORY ARREST [None]
